FAERS Safety Report 5146383-9 (Version None)
Quarter: 2006Q4

REPORT INFORMATION
  Report Type: 
  Country: None (occurrence: None)
  Receive Date: 20061108
  Receipt Date: 20061102
  Transmission Date: 20070319
  Serious: Yes (Death)
  Sender: FDA-Public Use
  Company Number: US-ROXANE LABORATORIES, INC-2006-DE-05779GD

PATIENT
  Age: 38 Year
  Sex: Male

DRUGS (11)
  1. PREDNISONE TAB [Suspect]
     Indication: ASTHMA
  2. SOLU-MEDROL [Suspect]
     Indication: ASTHMA
     Route: 042
  3. SOLU-MEDROL [Suspect]
     Route: 042
  4. STRESS-DOSE STEROIDS [Suspect]
     Indication: SHOCK
     Dosage: STRESS-DOSE
  5. CEFAZOLIN [Concomitant]
  6. CLONIDINE [Concomitant]
  7. PANTOPRAZOLE SODIUM [Concomitant]
  8. MORPHINE [Concomitant]
     Route: 042
  9. MEPERIDINE HCL [Concomitant]
     Route: 042
  10. SALMETEROL [Concomitant]
     Route: 055
  11. ALBUTEROL [Concomitant]
     Route: 055

REACTIONS (29)
  - ABDOMINAL PAIN [None]
  - ACUTE HEPATIC FAILURE [None]
  - AGITATION [None]
  - BACK PAIN [None]
  - BACTERAEMIA [None]
  - BRONCHOPNEUMONIA [None]
  - CATHETER SITE HAEMORRHAGE [None]
  - CYSTITIS HAEMORRHAGIC [None]
  - DIALYSIS [None]
  - DISSEMINATED INTRAVASCULAR COAGULATION [None]
  - GASTRITIS [None]
  - HEPATIC ENCEPHALOPATHY [None]
  - HERPES ZOSTER DISSEMINATED [None]
  - HYPERGLYCAEMIA [None]
  - HYPERKALAEMIA [None]
  - MENTAL STATUS CHANGES [None]
  - METABOLIC ACIDOSIS [None]
  - MULTI-ORGAN FAILURE [None]
  - OESOPHAGITIS [None]
  - OLIGURIA [None]
  - PERICARDIAL HAEMORRHAGE [None]
  - PULMONARY HAEMORRHAGE [None]
  - PULMONARY OEDEMA [None]
  - RASH VESICULAR [None]
  - RENAL INFARCT [None]
  - RESPIRATORY FAILURE [None]
  - SHOCK [None]
  - UPPER GASTROINTESTINAL HAEMORRHAGE [None]
  - VENTRICULAR TACHYCARDIA [None]
